FAERS Safety Report 18191008 (Version 2)
Quarter: 2020Q3

REPORT INFORMATION
  Report Type: Spontaneous
  Country: JP (occurrence: JP)
  Receive Date: 20200825
  Receipt Date: 20200827
  Transmission Date: 20201103
  Serious: Yes (Other)
  Sender: FDA-Public Use
  Company Number: JP-SA-2020SA224286

PATIENT

DRUGS (12)
  1. GASTROM [Concomitant]
     Active Substance: ECABET SODIUM
     Dosage: UNK
  2. HARNAL [Suspect]
     Active Substance: TAMSULOSIN HYDROCHLORIDE
     Indication: BENIGN PROSTATIC HYPERPLASIA
     Dosage: 0.2 MG, QD
     Route: 048
     Dates: start: 20170828
  3. RABEPRAZOLE NA [Concomitant]
     Active Substance: RABEPRAZOLE SODIUM
     Dosage: UNK
  4. BONALON [Concomitant]
     Active Substance: ALENDRONATE SODIUM
     Dosage: UNK
  5. PREDNISOLONE. [Concomitant]
     Active Substance: PREDNISOLONE
  6. MIKELUNA [Concomitant]
     Dosage: UNK
  7. URSO [Concomitant]
     Active Substance: URSODIOL
     Dosage: UNK
  8. MAGNESIUM OXIDE. [Concomitant]
     Active Substance: MAGNESIUM OXIDE
     Dosage: UNK
  9. ALLOPURINOL. [Concomitant]
     Active Substance: ALLOPURINOL
     Dosage: UNK
  10. RELVAR [Concomitant]
     Active Substance: FLUTICASONE FUROATE\VILANTEROL TRIFENATATE
     Dosage: UNK
  11. BARACLUDE [Concomitant]
     Active Substance: ENTECAVIR
     Dosage: UNK
  12. DAIKENCHUTO [Concomitant]
     Active Substance: HERBALS
     Dosage: UNK

REACTIONS (2)
  - Epilepsy [Unknown]
  - Loss of consciousness [Unknown]
